FAERS Safety Report 14763053 (Version 3)
Quarter: 2018Q4

REPORT INFORMATION
  Report Type: Spontaneous
  Country: IT (occurrence: IT)
  Receive Date: 20180416
  Receipt Date: 20181126
  Transmission Date: 20190204
  Serious: Yes (Hospitalization, Other)
  Sender: FDA-Public Use
  Company Number: IT-ACCORD-065959

PATIENT
  Age: 52 Year
  Sex: Male

DRUGS (2)
  1. DOCETAXEL. [Suspect]
     Active Substance: DOCETAXEL
     Indication: METASTASES TO LYMPH NODES
     Dosage: WEEKLY ADMINISTRATIONS IN CYCLES
     Dates: start: 201509
  2. CISPLATIN. [Suspect]
     Active Substance: CISPLATIN
     Indication: CHEMOTHERAPY
     Dates: start: 201509

REACTIONS (3)
  - Neurotoxicity [Unknown]
  - Atypical haemolytic uraemic syndrome [Recovering/Resolving]
  - Off label use [Unknown]
